FAERS Safety Report 19203792 (Version 5)
Quarter: 2022Q4

REPORT INFORMATION
  Report Type: Spontaneous
  Country: US (occurrence: US)
  Receive Date: 20210430
  Receipt Date: 20221208
  Transmission Date: 20230113
  Serious: No
  Sender: FDA-Public Use
  Company Number: US-PFIZER INC-2021383495

PATIENT
  Age: 27 Year
  Sex: Female

DRUGS (3)
  1. SOMAVERT [Suspect]
     Active Substance: PEGVISOMANT
     Indication: Acromegaly
     Dosage: 10 MG, DAILY
     Route: 058
     Dates: start: 20140101, end: 20210815
  2. SOMAVERT [Suspect]
     Active Substance: PEGVISOMANT
     Dosage: 10 MG, DAILY
     Route: 058
     Dates: start: 202110
  3. SOMAVERT [Suspect]
     Active Substance: PEGVISOMANT
     Dosage: 10 MG, DAILY(TAKING EVERY THIRDS DAY)
     Route: 048

REACTIONS (15)
  - Intentional dose omission [Unknown]
  - Product dose omission issue [Unknown]
  - Off label use [Unknown]
  - Treatment noncompliance [Unknown]
  - Laziness [Unknown]
  - Headache [Unknown]
  - Hypertrichosis [Unknown]
  - COVID-19 [Recovered/Resolved]
  - Fatigue [Unknown]
  - Acne [Unknown]
  - Memory impairment [Unknown]
  - Anger [Recovered/Resolved]
  - Alopecia [Unknown]
  - Off label use [Unknown]
  - Intentional product misuse [Unknown]

NARRATIVE: CASE EVENT DATE: 20140101
